FAERS Safety Report 6287313-6 (Version None)
Quarter: 2009Q3

REPORT INFORMATION
  Report Type: 
  Country: None (occurrence: None)
  Receive Date: 20090728
  Receipt Date: 20090728
  Transmission Date: 20100115
  Serious: Yes (Other)
  Sender: FDA-Public Use
  Company Number: US-PFIZER INC-2009226910

PATIENT
  Sex: Female

DRUGS (1)
  1. LYRICA [Suspect]

REACTIONS (4)
  - ARTERIOSCLEROSIS [None]
  - DRUG INTOLERANCE [None]
  - HEADACHE [None]
  - PROCEDURAL PAIN [None]
